FAERS Safety Report 19682799 (Version 1)
Quarter: 2021Q3

REPORT INFORMATION
  Report Type: Spontaneous
  Country: JP (occurrence: JP)
  Receive Date: 20210811
  Receipt Date: 20210811
  Transmission Date: 20211014
  Serious: Yes (Other)
  Sender: FDA-Public Use
  Company Number: JP-TEVA-2021-JP-1940073

PATIENT
  Age: 42 Year
  Sex: Male

DRUGS (4)
  1. LOXOPROFEN [Suspect]
     Active Substance: LOXOPROFEN
     Indication: PRODUCT USED FOR UNKNOWN INDICATION
     Route: 048
  2. CELECOXIB. [Suspect]
     Active Substance: CELECOXIB
     Indication: DRUG PROVOCATION TEST
     Dosage: AT 4H
     Route: 048
  3. CELECOXIB. [Suspect]
     Active Substance: CELECOXIB
     Indication: DRUG PROVOCATION TEST
     Dosage: AT 1.5H
     Route: 048
  4. ASPIRIN. [Suspect]
     Active Substance: ASPIRIN
     Indication: DRUG PROVOCATION TEST
     Route: 048

REACTIONS (3)
  - Condition aggravated [Unknown]
  - Bronchospasm [Unknown]
  - Aspirin-exacerbated respiratory disease [Unknown]
